FAERS Safety Report 4926925-6 (Version None)
Quarter: 2006Q1

REPORT INFORMATION
  Report Type: 
  Country: None (occurrence: None)
  Receive Date: 20060228
  Receipt Date: 20050913
  Transmission Date: 20060701
  Serious: No
  Sender: FDA-Public Use
  Company Number: US-GLAXOSMITHKLINE-A0574054A

PATIENT
  Age: 26 Year
  Sex: Female

DRUGS (5)
  1. LAMICTAL [Suspect]
     Indication: BIPOLAR DISORDER
     Dosage: 100MG PER DAY
     Route: 048
  2. LITHOBID [Concomitant]
     Dosage: 300MG THREE TIMES PER DAY
  3. RISPERDAL [Concomitant]
     Dosage: .5MG AT NIGHT
  4. ZOLOFT [Concomitant]
     Dosage: 200MG IN THE MORNING
  5. LEVOXYL [Concomitant]
     Dosage: .88MG IN THE MORNING

REACTIONS (1)
  - RASH PAPULAR [None]
